FAERS Safety Report 12932497 (Version 1)
Quarter: 2016Q4

REPORT INFORMATION
  Report Type: Spontaneous
  Country: DE (occurrence: DE)
  Receive Date: 20161111
  Receipt Date: 20161111
  Transmission Date: 20170207
  Serious: Yes (Other)
  Sender: FDA-Public Use
  Company Number: DE-AUROBINDO-AUR-APL-2016-13991

PATIENT
  Age: 53 Year
  Sex: Male

DRUGS (13)
  1. OLANZAPINE. [Suspect]
     Active Substance: OLANZAPINE
     Dosage: 12.5 MG, ONCE A DAY
     Route: 048
     Dates: start: 20151201, end: 20160129
  2. MIRTAZAPINE. [Concomitant]
     Active Substance: MIRTAZAPINE
     Indication: PRODUCT USED FOR UNKNOWN INDICATION
     Dosage: 45 MG, ONCE A DAY
     Route: 048
     Dates: start: 201509
  3. SIMVASTATIN. [Concomitant]
     Active Substance: SIMVASTATIN
     Indication: PRODUCT USED FOR UNKNOWN INDICATION
     Dosage: 20 MG, ONCE A DAY
     Route: 048
     Dates: start: 201508
  4. QUILONUM                           /00033702/ [Suspect]
     Active Substance: LITHIUM CARBONATE
     Dosage: 225 MG, ONCE A DAY
     Route: 048
     Dates: start: 20160208, end: 20160218
  5. QUETIAPIN [Concomitant]
     Active Substance: QUETIAPINE
     Indication: PRODUCT USED FOR UNKNOWN INDICATION
     Dosage: 450-50 MG
     Route: 048
     Dates: start: 201510, end: 20151220
  6. OLANZAPINE. [Suspect]
     Active Substance: OLANZAPINE
     Indication: PRODUCT USED FOR UNKNOWN INDICATION
     Dosage: 5 MG, ONCE A DAY
     Route: 048
     Dates: start: 20151118, end: 20151123
  7. QUILONUM                           /00033702/ [Suspect]
     Active Substance: LITHIUM CARBONATE
     Indication: PRODUCT USED FOR UNKNOWN INDICATION
     Dosage: 450 MG, ONCE A DAY
     Route: 048
     Dates: start: 20151125, end: 20151203
  8. QUILONUM                           /00033702/ [Suspect]
     Active Substance: LITHIUM CARBONATE
     Dosage: 675 MG, ONCE A DAY
     Route: 048
     Dates: start: 20160108, end: 20160125
  9. QUILONUM                           /00033702/ [Suspect]
     Active Substance: LITHIUM CARBONATE
     Dosage: 450 MG, ONCE A DAY
     Route: 048
     Dates: start: 20160126, end: 20160207
  10. OLANZAPINE. [Suspect]
     Active Substance: OLANZAPINE
     Dosage: 10 MG, ONCE A DAY
     Route: 048
     Dates: start: 20151124, end: 20151130
  11. OLANZAPINE. [Suspect]
     Active Substance: OLANZAPINE
     Dosage: 15 MG, ONCE A DAY
     Route: 048
     Dates: start: 20160130, end: 20160129
  12. QUILONUM                           /00033702/ [Suspect]
     Active Substance: LITHIUM CARBONATE
     Dosage: 900 MG, ONCE A DAY
     Route: 048
     Dates: start: 20151204, end: 20160107
  13. VENLAFAXIN [Concomitant]
     Active Substance: VENLAFAXINE HYDROCHLORIDE
     Indication: PRODUCT USED FOR UNKNOWN INDICATION
     Dosage: 225 MG, ONCE A DAY
     Route: 048
     Dates: start: 201509

REACTIONS (1)
  - Ejaculation disorder [Recovering/Resolving]

NARRATIVE: CASE EVENT DATE: 20151215
